FAERS Safety Report 4346172-9 (Version None)
Quarter: 2004Q1

REPORT INFORMATION
  Report Type: 
  Country: None (occurrence: None)
  Receive Date: 20040325
  Receipt Date: 20031209
  Transmission Date: 20041129
  Serious: No
  Sender: FDA-Public Use
  Company Number: USA031254373

PATIENT
  Age: 75 Year
  Sex: Female

DRUGS (12)
  1. FORTEO [Suspect]
     Indication: OSTEOPOROSIS
     Dosage: 20 UG/DAY
     Dates: start: 20031001
  2. CELEBREX [Concomitant]
  3. TYLENOL W/ CODEINE NO. 3 [Concomitant]
  4. HYDROCHLOROTHIAZIDE [Concomitant]
  5. SYNTHROID [Concomitant]
  6. PREDNISONE [Concomitant]
  7. XANAX [Concomitant]
  8. FLEXERIL [Concomitant]
  9. ZOLOFT [Concomitant]
  10. OSTEO BI-FLEX [Concomitant]
  11. ACIPHEX [Concomitant]
  12. LIPITOR [Concomitant]

REACTIONS (7)
  - ARTHRALGIA [None]
  - CRYING [None]
  - HIRSUTISM [None]
  - NERVOUSNESS [None]
  - PRURITUS [None]
  - SWELLING FACE [None]
  - URTICARIA [None]
